FAERS Safety Report 19413285 (Version 3)
Quarter: 2021Q4

REPORT INFORMATION
  Report Type: Report from Study
  Country: None (occurrence: IT)
  Receive Date: 20210614
  Receipt Date: 20211022
  Transmission Date: 20220303
  Serious: Yes (Hospitalization)
  Sender: FDA-Public Use
  Company Number: IT-ABBVIE-21K-083-3940176-00

PATIENT
  Age: 64 Year
  Sex: Male

DRUGS (2)
  1. CARBIDOPA\LEVODOPA [Suspect]
     Active Substance: CARBIDOPA\LEVODOPA
     Indication: Parkinson^s disease
     Dosage: DAILY DOSE: 1060MG; PUMP SETTING: MD: 6+3 CR: 3 (15H), ED: 1
     Route: 050
     Dates: start: 20210518, end: 20210604
  2. CARBIDOPA\LEVODOPA [Suspect]
     Active Substance: CARBIDOPA\LEVODOPA
     Dosage: DAILY DOSE: 1160MG; PUMP SETTING: MD: 6+3 CR: 3,2 (15H), ED: 2
     Route: 050
     Dates: start: 2021

REACTIONS (4)
  - Medical device site swelling [Recovered/Resolved]
  - Necrosis [Recovered/Resolved]
  - Stoma site ulcer [Recovered/Resolved]
  - Stoma site abscess [Recovered/Resolved]

NARRATIVE: CASE EVENT DATE: 20210601
